FAERS Safety Report 5475087-8 (Version None)
Quarter: 2007Q4

REPORT INFORMATION
  Report Type: 
  Country: None (occurrence: None)
  Receive Date: 20071002
  Receipt Date: 20070921
  Transmission Date: 20080405
  Serious: Yes (Hospitalization)
  Sender: FDA-Public Use
  Company Number: FR-BOEHRINGER INGELHEIM PHARMACEUTICALS, INC.-2007-FF-00927FF

PATIENT
  Sex: Female

DRUGS (6)
  1. JOSIR [Suspect]
     Route: 048
     Dates: start: 20070628
  2. AUGMENTIN '125' [Concomitant]
     Route: 042
     Dates: start: 20070627, end: 20070630
  3. PRIMPERAN [Concomitant]
     Dosage: 10MG / 2 ML
     Route: 042
     Dates: start: 20070627, end: 20070630
  4. TRIFLUCAN [Concomitant]
     Route: 048
     Dates: start: 20070627, end: 20070628
  5. INIPOMP [Concomitant]
     Route: 048
     Dates: start: 20070627
  6. ISOPTIN [Concomitant]
     Route: 048
     Dates: start: 20070629

REACTIONS (1)
  - HYPOKALAEMIA [None]
